FAERS Safety Report 4717510-X (Version None)
Quarter: 2005Q3

REPORT INFORMATION
  Report Type: 
  Country: None (occurrence: None)
  Receive Date: 20050715
  Receipt Date: 20050705
  Transmission Date: 20060218
  Serious: Yes (Other)
  Sender: FDA-Public Use
  Company Number: S05-USA-03220-01

PATIENT
  Age: 75 Year
  Sex: Male

DRUGS (4)
  1. NAMENDA [Suspect]
     Indication: AFFECTIVE DISORDER
     Dosage: 5 MG QD PO
     Route: 048
     Dates: start: 20050101, end: 20050101
  2. NAMENDA [Suspect]
     Indication: DEMENTIA
     Dosage: 5 MG QD PO
     Route: 048
     Dates: start: 20050101, end: 20050101
  3. KLONOPIN [Concomitant]
  4. ZYPREXA (OLNZAPINE) [Concomitant]

REACTIONS (7)
  - AGITATION [None]
  - CONFUSIONAL STATE [None]
  - INAPPROPRIATE AFFECT [None]
  - LIBIDO INCREASED [None]
  - MANIA [None]
  - MOOD SWINGS [None]
  - RESTLESSNESS [None]
